FAERS Safety Report 8996686 (Version 1)
Quarter: 2013Q1

REPORT INFORMATION
  Report Type: Spontaneous
  Country: US (occurrence: US)
  Receive Date: 20130104
  Receipt Date: 20130104
  Transmission Date: 20140127
  Serious: Yes (Other)
  Sender: FDA-Public Use
  Company Number: PHHY2012US075125

PATIENT
  Age: 67 Year
  Sex: Male

DRUGS (1)
  1. VALSARTAN [Suspect]

REACTIONS (4)
  - Dermatitis psoriasiform [Recovering/Resolving]
  - Rash [Recovering/Resolving]
  - Acrodermatitis enteropathica [Recovering/Resolving]
  - Blood zinc decreased [Unknown]
